FAERS Safety Report 6645377 (Version 13)
Quarter: 2013Q3

REPORT INFORMATION
  Report Type: Spontaneous
  Country: US (occurrence: US)
  Receive Date: 20080521
  Receipt Date: 20130819
  Transmission Date: 20140515
  Serious: Yes (Hospitalization, Other)
  Sender: FDA-Public Use
  Company Number: PHEH2008US04569

PATIENT
  Age: 25 Year
  Sex: Female

DRUGS (50)
  1. ZOMETA [Suspect]
  2. AREDIA [Suspect]
  3. LEVOTHYROXINE [Concomitant]
  4. VANCOMYCIN [Concomitant]
  5. HYDROCODONE W/ACETAMINOPHEN [Concomitant]
  6. LOVENOX [Concomitant]
  7. WARFARIN SODIUM [Concomitant]
  8. SYNTHROID [Concomitant]
  9. NICOTINE [Concomitant]
  10. DIFLUCAN [Concomitant]
  11. PAXIL [Concomitant]
  12. METHADONE [Concomitant]
  13. VIOXX [Concomitant]
  14. LORTAB [Concomitant]
  15. ANZEMET [Concomitant]
  16. CIPROFLOXACIN [Concomitant]
  17. MORPHINE [Concomitant]
  18. OXYCODONE [Concomitant]
  19. IBUPROFEN [Concomitant]
  20. LEVOXYL [Concomitant]
  21. APAP W/CODEINE [Concomitant]
  22. ERYTHROMYCIN [Concomitant]
  23. FERANCEE [Concomitant]
  24. CEPHALEXIN [Concomitant]
  25. CEFACLOR [Concomitant]
  26. LORABID [Concomitant]
  27. METHADOSE [Concomitant]
  28. CIPRO ^MILES^ [Concomitant]
  29. PREVACID [Concomitant]
  30. PROCHLORPERAZINE [Concomitant]
  31. ZITHROMAX ^HEINRICH MACK^ [Concomitant]
  32. LEVAQUIN [Concomitant]
  33. PAROXETINE [Concomitant]
  34. ESTRADIOL [Concomitant]
  35. PROMETHAZINE [Concomitant]
  36. PROTONIX ^PHARMACIA^ [Concomitant]
  37. METRONIDAZOLE [Concomitant]
  38. GUIATUSS [Concomitant]
  39. LORAZEPAM [Concomitant]
  40. RANITIDINE [Concomitant]
  41. BIAXIN XL [Concomitant]
  42. OMNICEF [Concomitant]
  43. CHLORHEXIDINE GLUCONATE [Concomitant]
  44. CEFDINIR [Concomitant]
  45. OFLOXACIN [Concomitant]
  46. BUSPIRONE [Concomitant]
  47. CLARITHROMYCIN [Concomitant]
  48. TRAMADOL [Concomitant]
  49. LANSOPRAZOLE [Concomitant]
  50. SECONAL [Concomitant]

REACTIONS (62)
  - Ovarian cyst [Unknown]
  - Osteonecrosis of jaw [Recovered/Resolved]
  - Injury [Unknown]
  - Pain [Unknown]
  - Anxiety [Unknown]
  - Anhedonia [Unknown]
  - Disability [Unknown]
  - Wound [Unknown]
  - Pain in jaw [Unknown]
  - Swelling face [Recovering/Resolving]
  - Tooth infection [Unknown]
  - Dental caries [Unknown]
  - Osteitis [Unknown]
  - Cellulitis [Unknown]
  - Intervertebral disc degeneration [Unknown]
  - Chills [Unknown]
  - Hypoaesthesia oral [Unknown]
  - Lymphadenopathy [Unknown]
  - Bone swelling [Unknown]
  - Bone erosion [Unknown]
  - Hypoaesthesia [Unknown]
  - Mass [Unknown]
  - Pain in extremity [Unknown]
  - Back pain [Unknown]
  - Amenorrhoea [Unknown]
  - Headache [Unknown]
  - Dysfunctional uterine bleeding [Unknown]
  - Muscle spasms [Unknown]
  - Polycystic ovaries [Unknown]
  - Bacterial vaginosis [Unknown]
  - Adenomyosis [Unknown]
  - Adnexa uteri mass [Unknown]
  - Pelvic mass [Unknown]
  - Ingrowing nail [Unknown]
  - Paronychia [Unknown]
  - Onychomycosis [Unknown]
  - Tendon disorder [Unknown]
  - Radiculitis lumbosacral [Unknown]
  - Sciatica [Unknown]
  - Spinal osteoarthritis [Unknown]
  - Carpal tunnel syndrome [Unknown]
  - Paraesthesia [Unknown]
  - Otitis media acute [Unknown]
  - Ear pain [Unknown]
  - Purulent discharge [Unknown]
  - Dyshidrotic eczema [Unknown]
  - Eczema [Unknown]
  - Rash maculo-papular [Unknown]
  - Arthralgia [Unknown]
  - Oropharyngeal pain [Unknown]
  - Productive cough [Unknown]
  - Nasal congestion [Unknown]
  - Upper respiratory tract infection [Unknown]
  - Sinusitis [Unknown]
  - Pharyngitis [Unknown]
  - Gastrooesophageal reflux disease [Unknown]
  - Sneezing [Unknown]
  - Bloody discharge [Unknown]
  - Proteinuria [Unknown]
  - Sebaceous gland disorder [Unknown]
  - Gastroenteritis [Unknown]
  - Nasopharyngitis [Unknown]
